FAERS Safety Report 5765710-2 (Version None)
Quarter: 2008Q2

REPORT INFORMATION
  Report Type: 
  Country: None (occurrence: None)
  Receive Date: 20080611
  Receipt Date: 20080603
  Transmission Date: 20081010
  Serious: Yes (Hospitalization)
  Sender: FDA-Public Use
  Company Number: PHEH2008US05047

PATIENT

DRUGS (3)
  1. TEGRETOL [Suspect]
  2. PEGINTERFERON ALFA-2B [Suspect]
     Indication: HEPATITIS C
     Dosage: UNK
     Dates: start: 20070501, end: 20070817
  3. REBETOL [Suspect]
     Indication: HEPATITIS C
     Dosage: UNK
     Dates: start: 20070501, end: 20070816

REACTIONS (21)
  - AGITATION [None]
  - ANAEMIA [None]
  - ANGER [None]
  - APHONIA [None]
  - ASTHENIA [None]
  - BLOOD COUNT ABNORMAL [None]
  - BLOOD PRESSURE INCREASED [None]
  - CONSTIPATION [None]
  - CYSTITIS [None]
  - DEHYDRATION [None]
  - FEELING ABNORMAL [None]
  - HEADACHE [None]
  - HOT FLUSH [None]
  - INFLUENZA LIKE ILLNESS [None]
  - INSOMNIA [None]
  - ORAL HERPES [None]
  - ORAL INTAKE REDUCED [None]
  - PYREXIA [None]
  - ROAD TRAFFIC ACCIDENT [None]
  - VOMITING [None]
  - WEIGHT DECREASED [None]
